FAERS Safety Report 23201274 (Version 2)
Quarter: 2024Q1

REPORT INFORMATION
  Report Type: Spontaneous
  Country: FR (occurrence: FR)
  Receive Date: 20231118
  Receipt Date: 20240318
  Transmission Date: 20240410
  Serious: Yes (Hospitalization)
  Sender: FDA-Public Use
  Company Number: None

PATIENT
  Age: 76 Year
  Sex: Male

DRUGS (2)
  1. CIPROFLOXACIN [Suspect]
     Active Substance: CIPROFLOXACIN
     Indication: Enterobacter infection
     Dosage: 500 MG X2/DAY
     Route: 065
     Dates: start: 20230818, end: 20230927
  2. CEFEPIME [Suspect]
     Active Substance: CEFEPIME HYDROCHLORIDE
     Indication: Enterobacter infection
     Dosage: 2 G X 3/DAY
     Route: 048
     Dates: start: 20230908, end: 20230914

REACTIONS (4)
  - Mixed liver injury [Unknown]
  - Mixed liver injury [Unknown]
  - Hepatocellular injury [Unknown]
  - Cholestatic liver injury [Unknown]

NARRATIVE: CASE EVENT DATE: 20230904
